FAERS Safety Report 15565241 (Version 1)
Quarter: 2018Q4

REPORT INFORMATION
  Report Type: Spontaneous
  Country: US (occurrence: US)
  Receive Date: 20181030
  Receipt Date: 20181030
  Transmission Date: 20190205
  Serious: No
  Sender: FDA-Public Use
  Company Number: US-SA-2018SA298682

PATIENT
  Age: 22 Year
  Sex: Male

DRUGS (2)
  1. SELSUN BLUE [Suspect]
     Active Substance: SELENIUM SULFIDE
     Indication: PRURITUS
     Dosage: UNK UNK, UNK
     Route: 065
  2. SELSUN BLUE [Suspect]
     Active Substance: SELENIUM SULFIDE
     Indication: DRY SKIN

REACTIONS (1)
  - Drug ineffective [Unknown]
